APPROVED DRUG PRODUCT: VERELAN
Active Ingredient: VERAPAMIL HYDROCHLORIDE
Strength: 180MG
Dosage Form/Route: CAPSULE, EXTENDED RELEASE;ORAL
Application: N019614 | Product #003 | TE Code: AB
Applicant: AZURITY PHARMACEUTICALS INC
Approved: Jan 9, 1992 | RLD: Yes | RS: No | Type: RX